FAERS Safety Report 18731519 (Version 1)
Quarter: 2021Q1

REPORT INFORMATION
  Report Type: Spontaneous
  Country: FR (occurrence: FR)
  Receive Date: 20210112
  Receipt Date: 20210112
  Transmission Date: 20210419
  Serious: Yes (Death, Hospitalization, Other)
  Sender: FDA-Public Use
  Company Number: FR-BAYER-2021-018306

PATIENT
  Age: 88 Year
  Sex: Male

DRUGS (2)
  1. CIFLOX [Suspect]
     Active Substance: CIPROFLOXACIN
     Indication: PNEUMONIA
     Dosage: UNK
  2. AMOXICILLIN/CLAVULANIC ACID [Concomitant]
     Active Substance: AMOXICILLIN\CLAVULANIC ACID
     Indication: PNEUMONIA
     Dosage: UNK

REACTIONS (7)
  - Bacteraemia [Fatal]
  - Respiratory failure [None]
  - Pathogen resistance [None]
  - Treatment failure [None]
  - Acute respiratory distress syndrome [Fatal]
  - Haemodynamic instability [None]
  - Nocardiosis [Fatal]
